FAERS Safety Report 8942124 (Version 1)
Quarter: 2012Q4

REPORT INFORMATION
  Report Type: 
  Country: US (occurrence: US)
  Receive Date: 20121203
  Receipt Date: 20121203
  Transmission Date: 20130627
  Serious: Yes (Other)
  Sender: FDA-Public Use
  Company Number: US-ROXANE LABORATORIES, INC.-2012-RO-02477RO

PATIENT
  Age: 8 Month
  Sex: Male

DRUGS (1)
  1. LIDOCAINE [Suspect]
     Indication: ORAL PAIN
     Route: 048

REACTIONS (2)
  - Decreased appetite [Recovered/Resolved]
  - Dehydration [Recovered/Resolved]
